FAERS Safety Report 4870678-7 (Version None)
Quarter: 2005Q4

REPORT INFORMATION
  Report Type: 
  Country: None (occurrence: None)
  Receive Date: 20051228
  Receipt Date: 20051208
  Transmission Date: 20060501
  Serious: Yes (Hospitalization, Other)
  Sender: FDA-Public Use
  Company Number: GBS051118952

PATIENT
  Age: 61 Year
  Sex: Male
  Weight: 92 kg

DRUGS (6)
  1. GEMZAR [Suspect]
     Indication: NON-SMALL CELL LUNG CANCER
     Dosage: 2400 MG, INTRAVENOUS : 1900 MG, INTRAVENOUS
     Route: 042
     Dates: start: 20050223
  2. GEMZAR [Suspect]
     Indication: NON-SMALL CELL LUNG CANCER
     Dosage: 2400 MG, INTRAVENOUS : 1900 MG, INTRAVENOUS
     Route: 042
     Dates: start: 20050425
  3. CARBOPLATIN [Concomitant]
  4. ATENOLOL [Concomitant]
  5. SIMVASTATIN [Concomitant]
  6. ENOXAPARIN SODIUM [Concomitant]

REACTIONS (3)
  - ANAEMIA [None]
  - EPISTAXIS [None]
  - THROMBOCYTOPENIA [None]
